FAERS Safety Report 13547092 (Version 2)
Quarter: 2017Q2

REPORT INFORMATION
  Report Type: Spontaneous
  Country: DE (occurrence: DE)
  Receive Date: 20170515
  Receipt Date: 20170531
  Transmission Date: 20170830
  Serious: Yes (Other)
  Sender: FDA-Public Use
  Company Number: DE-VERTEX PHARMACEUTICALS-2017-002555

PATIENT
  Age: 42 Year
  Sex: Male

DRUGS (14)
  1. SINGULAIR [Concomitant]
     Active Substance: MONTELUKAST SODIUM
  2. COLISTIN [Concomitant]
     Active Substance: COLISTIN
  3. KALYDECO [Suspect]
     Active Substance: IVACAFTOR
     Indication: CYSTIC FIBROSIS
     Dosage: 2 DF (150MG EACH) PER DAY
     Route: 048
     Dates: start: 201501
  4. CETIRIZINE [Concomitant]
     Active Substance: CETIRIZINE HYDROCHLORIDE
  5. VITAMIN E [Concomitant]
     Active Substance: .ALPHA.-TOCOPHEROL
  6. VITAMIN A [Concomitant]
     Active Substance: VITAMIN A
  7. VITAMIN D [Concomitant]
     Active Substance: CHOLECALCIFEROL
  8. OMEPRAZOLE. [Concomitant]
     Active Substance: OMEPRAZOLE
  9. PULMOZYME [Concomitant]
     Active Substance: DORNASE ALFA
  10. VITAMIN K [Concomitant]
     Active Substance: PHYTONADIONE
  11. CALCIUM [Concomitant]
     Active Substance: CALCIUM
  12. APROVEL [Concomitant]
     Active Substance: IRBESARTAN
  13. ALVESCO [Concomitant]
     Active Substance: CICLESONIDE
  14. SPIRIVA [Concomitant]
     Active Substance: TIOTROPIUM BROMIDE MONOHYDRATE

REACTIONS (3)
  - Apraxia [Not Recovered/Not Resolved]
  - Basal ganglia haemorrhage [Not Recovered/Not Resolved]
  - Hemiparesis [Not Recovered/Not Resolved]

NARRATIVE: CASE EVENT DATE: 201704
